FAERS Safety Report 20059714 (Version 1)
Quarter: 2021Q4

REPORT INFORMATION
  Report Type: Spontaneous
  Country: BG (occurrence: None)
  Receive Date: 20211111
  Receipt Date: 20211111
  Transmission Date: 20220303
  Serious: Yes (Disabling)
  Sender: FDA-Public Use
  Company Number: 2021A800133

PATIENT
  Age: 42 Year
  Sex: Female

DRUGS (1)
  1. LYNPARZA [Suspect]
     Active Substance: OLAPARIB
     Indication: Ovarian cancer
     Route: 048
     Dates: start: 20200801

REACTIONS (4)
  - Madarosis [Recovered/Resolved]
  - Alopecia [Unknown]
  - Chills [Unknown]
  - Pain of skin [Unknown]

NARRATIVE: CASE EVENT DATE: 20201228
